FAERS Safety Report 4436365-4 (Version None)
Quarter: 2004Q3

REPORT INFORMATION
  Report Type: 
  Country: None (occurrence: None)
  Receive Date: 20040728
  Receipt Date: 20040121
  Transmission Date: 20050211
  Serious: Yes (Hospitalization)
  Sender: FDA-Public Use
  Company Number: 204281

PATIENT
  Age: 69 Year
  Sex: Female

DRUGS (3)
  1. RITUXAN [Suspect]
     Indication: LYMPHOMA
     Dosage: 375 MG/M2, 1/WEEK, INTRAVENOUS
     Route: 042
     Dates: start: 20030528
  2. ACETAMINOPHEN [Concomitant]
  3. DIPHENHYDRAMINE (DIPHENHYDRAMINE NOS) [Concomitant]

REACTIONS (2)
  - BLOOD PRESSURE DECREASED [None]
  - THROAT TIGHTNESS [None]
